FAERS Safety Report 5136251-0 (Version None)
Quarter: 2006Q4

REPORT INFORMATION
  Report Type: 
  Country: None (occurrence: None)
  Receive Date: 20061027
  Receipt Date: 20061019
  Transmission Date: 20070319
  Serious: Yes (Hospitalization)
  Sender: FDA-Public Use
  Company Number: US-PURDUE-USA_2006_0025441

PATIENT
  Sex: Female

DRUGS (1)
  1. OXYCONTIN [Suspect]
     Indication: PAIN
     Dosage: UNK MG, UNK

REACTIONS (7)
  - ABDOMINAL DISCOMFORT [None]
  - CHEST DISCOMFORT [None]
  - FEAR [None]
  - GASTROINTESTINAL DISORDER [None]
  - OESOPHAGEAL PAIN [None]
  - PHARMACEUTICAL PRODUCT COMPLAINT [None]
  - THERAPY NON-RESPONDER [None]
